FAERS Safety Report 14912861 (Version 1)
Quarter: 2018Q2

REPORT INFORMATION
  Report Type: Spontaneous
  Country: DE (occurrence: DE)
  Receive Date: 20180518
  Receipt Date: 20180518
  Transmission Date: 20180711
  Serious: Yes (Hospitalization)
  Sender: FDA-Public Use
  Company Number: DE-BAYER-2018-090698

PATIENT
  Age: 80 Year
  Sex: Female

DRUGS (4)
  1. BISOPROLOL [Concomitant]
     Active Substance: BISOPROLOL
     Dosage: 2.5 MG, QD
  2. ASPIRIN 100 MG [Suspect]
     Active Substance: ASPIRIN
     Dosage: 100 MG, QD
  3. XIPAMID [Concomitant]
     Active Substance: XIPAMIDE
     Dosage: 20 MG, QD
  4. CRATAEGUTT NOVO [Concomitant]
     Active Substance: CRATAEGUS LAEVIGATA LEAF
     Dosage: 450 MG, QD

REACTIONS (4)
  - Product used for unknown indication [Unknown]
  - Weight decreased [Unknown]
  - Dyspnoea [Unknown]
  - Drug prescribing error [Unknown]
